FAERS Safety Report 7720354-8 (Version None)
Quarter: 2011Q3

REPORT INFORMATION
  Report Type: 
  Country: None (occurrence: None)
  Receive Date: 20110825
  Receipt Date: 20110810
  Transmission Date: 20111222
  Serious: Yes (Other)
  Sender: FDA-Public Use
  Company Number: JP-1187531

PATIENT
  Age: 70 Year
  Sex: Male

DRUGS (2)
  1. BOSMIN [Concomitant]
  2. BSS PLUS [Suspect]
     Indication: CATARACT OPERATION
     Dosage: (200 ML INTRAOCULAR)
     Route: 031
     Dates: start: 20110809, end: 20110809

REACTIONS (4)
  - CORNEAL OPACITY [None]
  - EYELID OEDEMA [None]
  - CORNEAL DISORDER [None]
  - CORNEAL ABRASION [None]
